FAERS Safety Report 6377353-0 (Version None)
Quarter: 2009Q3

REPORT INFORMATION
  Report Type: 
  Country: None (occurrence: None)
  Receive Date: 20090923
  Receipt Date: 20090923
  Transmission Date: 20100115
  Serious: No
  Sender: FDA-Public Use
  Company Number: None

PATIENT
  Age: 64 Year
  Sex: Female
  Weight: 82 kg

DRUGS (7)
  1. WARFARIN [Suspect]
     Indication: THROMBOSIS PROPHYLAXIS
     Dosage: 5MG PO DAILY
     Route: 048
     Dates: end: 20090621
  2. ASPIRIN [Concomitant]
  3. BENICAR [Concomitant]
  4. LASIX [Concomitant]
  5. LOVAZA [Concomitant]
  6. VYTORIN [Concomitant]
  7. PROAIR HFA [Concomitant]

REACTIONS (6)
  - DYSPNOEA [None]
  - HAEMATURIA [None]
  - HAEMOGLOBIN DECREASED [None]
  - INTERNATIONAL NORMALISED RATIO INCREASED [None]
  - IRON DEFICIENCY ANAEMIA [None]
  - OCCULT BLOOD POSITIVE [None]
